FAERS Safety Report 18780733 (Version 1)
Quarter: 2021Q1

REPORT INFORMATION
  Report Type: Spontaneous
  Country: US (occurrence: US)
  Receive Date: 20210123
  Receipt Date: 20210123
  Transmission Date: 20210419
  Serious: Yes (Disabling, Other)
  Sender: FDA-Public Use
  Company Number: None

PATIENT
  Age: 43 Year
  Sex: Female
  Weight: 54 kg

DRUGS (4)
  1. BUPROPION XL 300MG [Suspect]
     Active Substance: BUPROPION
     Indication: ANXIETY
     Dosage: ?          QUANTITY:1 TABLET(S);?
     Route: 048
     Dates: start: 20201101, end: 20210101
  2. BUPROPION XL 300MG [Suspect]
     Active Substance: BUPROPION
     Indication: PERSONALITY DISORDER
     Dosage: ?          QUANTITY:1 TABLET(S);?
     Route: 048
     Dates: start: 20201101, end: 20210101
  3. BUPROPION XL 300MG [Suspect]
     Active Substance: BUPROPION
     Indication: DEPRESSION
     Dosage: ?          QUANTITY:1 TABLET(S);?
     Route: 048
     Dates: start: 20201101, end: 20210101
  4. BUPROPION XL 300MG [Suspect]
     Active Substance: BUPROPION
     Indication: POST-TRAUMATIC STRESS DISORDER
     Dosage: ?          QUANTITY:1 TABLET(S);?
     Route: 048
     Dates: start: 20201101, end: 20210101

REACTIONS (12)
  - Product substitution issue [None]
  - Insurance issue [None]
  - Therapeutic product effect increased [None]
  - Dysgeusia [None]
  - Pain [None]
  - Headache [None]
  - Pruritus [None]
  - Anxiety [None]
  - Mood altered [None]
  - Sensory disturbance [None]
  - Panic attack [None]
  - Manufacturing materials issue [None]

NARRATIVE: CASE EVENT DATE: 20201101
